FAERS Safety Report 8902584 (Version 4)
Quarter: 2014Q4

REPORT INFORMATION
  Report Type: Spontaneous
  Country: US (occurrence: US)
  Receive Date: 20121112
  Receipt Date: 20141001
  Transmission Date: 20150529
  Serious: Yes (Other)
  Sender: FDA-Public Use
  Company Number: US-PFIZER INC-2012279370

PATIENT
  Age: 41 Year
  Sex: Female
  Weight: 86.17 kg

DRUGS (9)
  1. LYRICA [Suspect]
     Active Substance: PREGABALIN
     Indication: NEURALGIA
     Dosage: 200 MG, 3X/DAY
     Route: 048
  2. DURAGESIC [Concomitant]
     Active Substance: FENTANYL
     Dosage: 50 UG, UNK
  3. LYRICA [Suspect]
     Active Substance: PREGABALIN
     Indication: NERVE INJURY
  4. DILAUDID [Concomitant]
     Active Substance: HYDROMORPHONE HYDROCHLORIDE
     Dosage: 4 MG, 3X/DAY
  5. TOPAMAX [Concomitant]
     Active Substance: TOPIRAMATE
     Dosage: UNK
  6. LYRICA [Suspect]
     Active Substance: PREGABALIN
     Indication: FIBROMYALGIA
     Dosage: 150 MG, 3X/DAY
     Route: 048
     Dates: end: 201210
  7. XANAX [Concomitant]
     Active Substance: ALPRAZOLAM
     Dosage: UNK
  8. DILAUDID [Concomitant]
     Active Substance: HYDROMORPHONE HYDROCHLORIDE
     Dosage: 4 MG, 4X/DAY
  9. FENTANYL. [Concomitant]
     Active Substance: FENTANYL
     Dosage: 75 MCG PER HOUR

REACTIONS (6)
  - Leukaemia [Unknown]
  - Paraesthesia [Unknown]
  - Blood count abnormal [Unknown]
  - Bedridden [Unknown]
  - White blood cell count decreased [Unknown]
  - Sepsis [Unknown]

NARRATIVE: CASE EVENT DATE: 201208
